FAERS Safety Report 6480719-1 (Version None)
Quarter: 2009Q4

REPORT INFORMATION
  Report Type: 
  Country: None (occurrence: None)
  Receive Date: 20091208
  Receipt Date: 20091130
  Transmission Date: 20100525
  Serious: Yes (Death)
  Sender: FDA-Public Use
  Company Number: JP-PFIZER INC-2009300142

PATIENT
  Age: 70 Year
  Sex: Female
  Weight: 40 kg

DRUGS (18)
  1. SILDENAFIL CITRATE [Suspect]
     Indication: PULMONARY ARTERIAL HYPERTENSION
     Dosage: 20 MG, 3X/DAY
     Route: 048
     Dates: start: 20090727, end: 20091012
  2. SILDENAFIL CITRATE [Suspect]
     Indication: SCLERODERMA
  3. TRACLEER [Suspect]
     Indication: PULMONARY ARTERIAL HYPERTENSION
     Route: 048
  4. TRACLEER [Suspect]
     Indication: SCLERODERMA
  5. PROCYLIN [Concomitant]
     Route: 048
  6. VALSARTAN [Concomitant]
     Route: 048
  7. AMLODIN [Concomitant]
     Route: 048
  8. LIVALO [Concomitant]
     Route: 048
  9. PARIET [Concomitant]
     Route: 048
  10. LOXONIN [Concomitant]
     Route: 048
  11. FERROMIA [Concomitant]
     Route: 048
  12. ALPROSTADIL [Concomitant]
     Route: 062
  13. ERYTHROCIN LACTOBIONATE [Concomitant]
     Route: 048
  14. SPIROPENT [Concomitant]
     Route: 048
  15. ASTOMIN [Concomitant]
     Route: 048
  16. MUCODYNE [Concomitant]
     Route: 048
  17. HUSCODE [Concomitant]
     Route: 048
  18. RIZE [Concomitant]
     Route: 048

REACTIONS (1)
  - ARRHYTHMIA [None]
